FAERS Safety Report 9295202 (Version 1)
Quarter: 2013Q2

REPORT INFORMATION
  Report Type: Spontaneous
  Country: GR (occurrence: GR)
  Receive Date: 20130517
  Receipt Date: 20130517
  Transmission Date: 20140414
  Serious: Yes (Other)
  Sender: FDA-Public Use
  Company Number: GR-ACCORD-017593

PATIENT
  Age: 50 Year
  Sex: Female

DRUGS (4)
  1. TAMOXIFEN [Suspect]
     Indication: INVASIVE LOBULAR BREAST CARCINOMA
  2. ANASTROZOLE [Suspect]
     Indication: INVASIVE LOBULAR BREAST CARCINOMA
     Route: 048
  3. EXEMESTANE [Suspect]
     Indication: INVASIVE LOBULAR BREAST CARCINOMA
  4. LETROZOLE [Suspect]
     Indication: INVASIVE LOBULAR BREAST CARCINOMA

REACTIONS (2)
  - Diarrhoea [Unknown]
  - Reaction to drug excipients [Unknown]
